FAERS Safety Report 4716583-8 (Version None)
Quarter: 2005Q3

REPORT INFORMATION
  Report Type: 
  Country: None (occurrence: None)
  Receive Date: 20050718
  Receipt Date: 20050713
  Transmission Date: 20060218
  Serious: Yes (Life-Threatening, Hospitalization)
  Sender: FDA-Public Use
  Company Number: 05-07-1193

PATIENT
  Age: 56 Year
  Sex: Female

DRUGS (6)
  1. CEPHALEXIN [Suspect]
     Dosage: 500MG
  2. DICLOFENAC UNKNOWN [Suspect]
     Dosage: 25MG OD ORAL
     Route: 048
  3. CALCICHEW [Concomitant]
  4. OMEPRAZOLE [Concomitant]
  5. CYCLIZINE [Concomitant]
  6. ACETAMINOPHEN [Concomitant]

REACTIONS (1)
  - RENAL FAILURE ACUTE [None]
